FAERS Safety Report 8589003 (Version 2)
Quarter: 2013Q2

REPORT INFORMATION
  Report Type: Spontaneous
  Country: US (occurrence: US)
  Receive Date: 20120531
  Receipt Date: 20130402
  Transmission Date: 20140414
  Serious: No
  Sender: FDA-Public Use
  Company Number: US-ASTRAZENECA-2012SE32527

PATIENT
  Age: 60 Year
  Sex: Female

DRUGS (3)
  1. NEXIUM [Suspect]
     Indication: GASTROOESOPHAGEAL REFLUX DISEASE
     Route: 048
  2. NEXIUM [Suspect]
     Indication: GASTROOESOPHAGEAL REFLUX DISEASE
     Route: 048
  3. VIMOVO [Suspect]
     Route: 048

REACTIONS (3)
  - Pigmentation disorder [Not Recovered/Not Resolved]
  - Gastrooesophageal reflux disease [Unknown]
  - Intentional drug misuse [Unknown]
